FAERS Safety Report 6735993-0 (Version None)
Quarter: 2010Q2

REPORT INFORMATION
  Report Type: 
  Country: None (occurrence: None)
  Receive Date: 20100521
  Receipt Date: 20100514
  Transmission Date: 20101027
  Serious: Yes (Hospitalization, Other)
  Sender: FDA-Public Use
  Company Number: KR-ELI_LILLY_AND_COMPANY-KR201005004333

PATIENT
  Age: 53 Year
  Sex: Male

DRUGS (2)
  1. HUMALOG MIX 75/25 [Suspect]
     Indication: TYPE 2 DIABETES MELLITUS
     Dosage: 30 IU, EACH MORNING
     Route: 058
     Dates: start: 20100401
  2. HUMALOG MIX 75/25 [Suspect]
     Dosage: 14 IU, EACH EVENING
     Route: 058
     Dates: start: 20100401

REACTIONS (1)
  - LUNG NEOPLASM MALIGNANT [None]
